FAERS Safety Report 6057210-X (Version None)
Quarter: 2009Q1

REPORT INFORMATION
  Report Type: 
  Country: None (occurrence: None)
  Receive Date: 20090129
  Receipt Date: 20080319
  Transmission Date: 20090719
  Serious: No
  Sender: FDA-Public Use
  Company Number: A0717662A

PATIENT
  Sex: Female

DRUGS (2)
  1. BUPROPION HYDROCHLORIDE [Suspect]
     Indication: ANXIETY
     Route: 048
  2. WELLBUTRIN [Suspect]
     Indication: ANXIETY
     Route: 048

REACTIONS (2)
  - ADVERSE DRUG REACTION [None]
  - DIZZINESS [None]
